FAERS Safety Report 11092662 (Version 2)
Quarter: 2015Q2

REPORT INFORMATION
  Report Type: Spontaneous
  Country: US (occurrence: US)
  Receive Date: 20150506
  Receipt Date: 20150512
  Transmission Date: 20150821
  Serious: Yes (Hospitalization)
  Sender: FDA-Public Use
  Company Number: US-UNITED THERAPEUTICS-UNT-2015-005044

PATIENT
  Age: 37 Year
  Sex: Female

DRUGS (3)
  1. TYVASO [Suspect]
     Active Substance: TREPROSTINIL
     Indication: OFF LABEL USE
  2. LETAIRIS [Concomitant]
     Active Substance: AMBRISENTAN
     Indication: PRODUCT USED FOR UNKNOWN INDICATION
  3. TYVASO [Suspect]
     Active Substance: TREPROSTINIL
     Indication: HEREDITARY HAEMORRHAGIC TELANGIECTASIA
     Dosage: 54 ?G, QID
     Dates: start: 20130426, end: 20150430

REACTIONS (5)
  - Arteriovenous malformation [Unknown]
  - General physical health deterioration [Unknown]
  - Off label use [Unknown]
  - Haemoptysis [Unknown]
  - Cough [Unknown]

NARRATIVE: CASE EVENT DATE: 201504
